FAERS Safety Report 7954973-0 (Version None)
Quarter: 2011Q4

REPORT INFORMATION
  Report Type: 
  Country: None (occurrence: None)
  Receive Date: 20111202
  Receipt Date: 20111125
  Transmission Date: 20120403
  Serious: Yes (Other)
  Sender: FDA-Public Use
  Company Number: US-BAYER-2011-113873

PATIENT
  Age: 62 Year
  Sex: Male

DRUGS (1)
  1. BETASERON [Suspect]
     Indication: MULTIPLE SCLEROSIS
     Dosage: 8 MIU, QOD
     Route: 058
     Dates: start: 20101122

REACTIONS (6)
  - FALL [None]
  - DIZZINESS [None]
  - DEPRESSION [None]
  - TRANSIENT ISCHAEMIC ATTACK [None]
  - ASTHENIA [None]
  - MOOD ALTERED [None]
